FAERS Safety Report 6468911-3 (Version None)
Quarter: 2009Q4

REPORT INFORMATION
  Report Type: 
  Country: None (occurrence: None)
  Receive Date: 20091203
  Receipt Date: 20071218
  Transmission Date: 20100525
  Serious: Yes (Other)
  Sender: FDA-Public Use
  Company Number: US-ELI_LILLY_AND_COMPANY-US_980504052

PATIENT
  Age: 15 Year
  Sex: Male

DRUGS (2)
  1. PROZAC [Suspect]
     Dosage: UNK, UNKNOWN
     Dates: end: 19971001
  2. RITALIN [Concomitant]
     Dosage: UNK, UNKNOWN

REACTIONS (2)
  - HOMICIDE [None]
  - PHYSICAL ASSAULT [None]
